FAERS Safety Report 24961122 (Version 1)
Quarter: 2025Q1

REPORT INFORMATION
  Report Type: Spontaneous
  Country: ES (occurrence: ES)
  Receive Date: 20250212
  Receipt Date: 20250212
  Transmission Date: 20250409
  Serious: Yes (Disabling)
  Sender: AMGEN
  Company Number: None

PATIENT
  Age: 74 Year
  Sex: Female
  Weight: 50 kg

DRUGS (1)
  1. PROLIA [Suspect]
     Active Substance: DENOSUMAB
     Indication: Osteoporosis
     Route: 058
     Dates: start: 20180101, end: 20220101

REACTIONS (1)
  - Spinal fracture [Recovered/Resolved with Sequelae]

NARRATIVE: CASE EVENT DATE: 20220701
